FAERS Safety Report 5899443-9 (Version None)
Quarter: 2008Q3

REPORT INFORMATION
  Report Type: 
  Country: None (occurrence: None)
  Receive Date: 20080924
  Receipt Date: 20080910
  Transmission Date: 20090109
  Serious: Yes (Hospitalization)
  Sender: FDA-Public Use
  Company Number: 2008BI021811

PATIENT
  Age: 67 Year
  Sex: Female

DRUGS (9)
  1. TYSABRI [Suspect]
     Indication: MULTIPLE SCLEROSIS
     Dosage: 300 MG;QM;IV
     Route: 042
     Dates: start: 20080605
  2. BACLOFEN [Concomitant]
  3. PROZAC [Concomitant]
  4. NEXIUM [Concomitant]
  5. FLONASE [Concomitant]
  6. WELLBUTRIN [Concomitant]
  7. MUCINEX [Concomitant]
  8. AVONEX [Concomitant]
  9. COPAXONE [Concomitant]

REACTIONS (8)
  - ATAXIA [None]
  - CEREBRAL ATROPHY [None]
  - CEREBRAL VENTRICLE DILATATION [None]
  - DEMENTIA [None]
  - GAIT DISTURBANCE [None]
  - HYDROCEPHALUS [None]
  - SENSATION OF HEAVINESS [None]
  - URINARY INCONTINENCE [None]
